FAERS Safety Report 11297217 (Version 1)
Quarter: 2015Q3

REPORT INFORMATION
  Report Type: Spontaneous
  Country: US (occurrence: US)
  Receive Date: 20150722
  Receipt Date: 20150722
  Transmission Date: 20151125
  Serious: Yes (Other)
  Sender: FDA-Public Use
  Company Number: US-ELI_LILLY_AND_COMPANY-US201103005687

PATIENT
  Age: 63 Year
  Sex: Female

DRUGS (11)
  1. RELAFEN [Concomitant]
     Active Substance: NABUMETONE
  2. AMIODARONE [Concomitant]
     Active Substance: AMIODARONE
     Dates: start: 20110223
  3. SERTRALINE [Concomitant]
     Active Substance: SERTRALINE HYDROCHLORIDE
  4. ZOLOFT [Concomitant]
     Active Substance: SERTRALINE HYDROCHLORIDE
  5. EFFIENT [Suspect]
     Active Substance: PRASUGREL HYDROCHLORIDE
     Indication: ATRIAL FIBRILLATION
     Dosage: 10 MG, UNK
     Dates: start: 20110223, end: 20110309
  6. TRAZODONE [Concomitant]
     Active Substance: TRAZODONE HYDROCHLORIDE
  7. METOPROLOL [Concomitant]
     Active Substance: METOPROLOL
     Dates: start: 20110223
  8. PRAVASTATIN [Concomitant]
     Active Substance: PRAVASTATIN\PRAVASTATIN SODIUM
  9. GABAPENTIN. [Concomitant]
     Active Substance: GABAPENTIN
  10. OMEPRAZOLE. [Concomitant]
     Active Substance: OMEPRAZOLE
  11. ASA [Concomitant]
     Active Substance: ASPIRIN
     Dates: start: 20110223

REACTIONS (2)
  - Contusion [Unknown]
  - Atrial fibrillation [Unknown]
